FAERS Safety Report 5078638-0 (Version None)
Quarter: 2006Q3

REPORT INFORMATION
  Report Type: 
  Country: None (occurrence: None)
  Receive Date: 20060808
  Receipt Date: 20060725
  Transmission Date: 20061208
  Serious: Yes (Death, Life-Threatening)
  Sender: FDA-Public Use
  Company Number: 2006MP000918

PATIENT
  Age: 70 Year
  Sex: Male

DRUGS (7)
  1. AGGRASTAT [Suspect]
     Indication: ANGINA UNSTABLE
     Dosage: IV
     Route: 042
     Dates: start: 20060720, end: 20060721
  2. AGGRASTAT [Suspect]
     Indication: MYOCARDIAL INFARCTION
     Dosage: IV
     Route: 042
     Dates: start: 20060720, end: 20060721
  3. NEXIUM [Concomitant]
  4. ASPIRIN [Concomitant]
  5. NITROGLYCERIN [Concomitant]
  6. CEFTRIAXONE [Concomitant]
  7. CLEXANE [Concomitant]

REACTIONS (5)
  - CARDIO-RESPIRATORY ARREST [None]
  - HAEMODIALYSIS [None]
  - MUCOSAL HAEMORRHAGE [None]
  - RENAL FAILURE [None]
  - SEPSIS [None]
